FAERS Safety Report 6905601-4 (Version None)
Quarter: 2010Q3

REPORT INFORMATION
  Report Type: 
  Country: None (occurrence: None)
  Receive Date: 20100804
  Receipt Date: 20080129
  Transmission Date: 20110219
  Serious: No
  Sender: FDA-Public Use
  Company Number: PFIZER INC-2007107563

PATIENT
  Sex: Female
  Weight: 68.2 kg

DRUGS (2)
  1. CHANTIX [Suspect]
     Indication: SMOKING CESSATION THERAPY
     Dates: start: 20071101
  2. CELEXA [Concomitant]

REACTIONS (4)
  - ERYTHEMA [None]
  - HEADACHE [None]
  - PHOTOPHOBIA [None]
  - WEIGHT INCREASED [None]
